FAERS Safety Report 19032058 (Version 1)
Quarter: 2021Q1

REPORT INFORMATION
  Report Type: Spontaneous
  Country: US (occurrence: US)
  Receive Date: 20210319
  Receipt Date: 20210319
  Transmission Date: 20210420
  Serious: No
  Sender: FDA-Public Use
  Company Number: US-TASMAN PHARMA, INC.-2020TSM00207

PATIENT
  Sex: Male
  Weight: 114.3 kg

DRUGS (3)
  1. VALIUM [Concomitant]
     Active Substance: DIAZEPAM
     Dosage: 5 MG, 3X/DAY
  2. LEXAPRO [Concomitant]
     Active Substance: ESCITALOPRAM OXALATE
     Dosage: 20 MG, 1X/DAY
  3. CLOZAPINE. [Suspect]
     Active Substance: CLOZAPINE
     Indication: PSYCHOTIC DISORDER
     Dosage: 300 MG, 1X/DAY AT BEDTIME
     Dates: start: 20130517

REACTIONS (2)
  - Treatment noncompliance [Unknown]
  - Anxiety [Not Recovered/Not Resolved]

NARRATIVE: CASE EVENT DATE: 2020
